FAERS Safety Report 8166933-8 (Version None)
Quarter: 2012Q1

REPORT INFORMATION
  Report Type: 
  Country: None (occurrence: None)
  Receive Date: 20120227
  Receipt Date: 20120223
  Transmission Date: 20120608
  Serious: Yes (Death)
  Sender: FDA-Public Use
  Company Number: NL-JNJFOC-20120212047

PATIENT
  Sex: Female
  Weight: 460 kg

DRUGS (3)
  1. REMINYL RETARD CAPSULE [Suspect]
     Indication: DEMENTIA ALZHEIMER'S TYPE
     Route: 065
     Dates: start: 20091114
  2. THYRAX [Concomitant]
     Indication: HYPOTHYROIDISM
     Route: 048
     Dates: start: 20050101
  3. CARBASALAATCALCIUM [Suspect]
     Indication: THROMBOCYTOSIS
     Route: 065
     Dates: start: 20050101

REACTIONS (1)
  - CEREBRAL HAEMORRHAGE [None]
